FAERS Safety Report 8917178 (Version 1)
Quarter: 2012Q4

REPORT INFORMATION
  Report Type: 
  Country: SE (occurrence: SE)
  Receive Date: 20121120
  Receipt Date: 20121120
  Transmission Date: 20130627
  Serious: Yes (Hospitalization)
  Sender: FDA-Public Use
  Company Number: SE-PFIZER INC-2012287865

PATIENT
  Age: 73 Year
  Sex: Female
  Weight: 61 kg

DRUGS (4)
  1. GENOTROPIN [Suspect]
     Dosage: 0.6 mg, 1x/day7 injections/week
     Route: 058
     Dates: start: 20011105
  2. PROGYNON [Concomitant]
     Indication: OVARIAN DYSFUNCTION
     Dosage: UNK
     Dates: start: 19880101
  3. LEVAXIN [Concomitant]
     Indication: TSH DECREASE
     Dosage: UNK
     Dates: start: 19880101
  4. LEVAXIN [Concomitant]
     Indication: PRIMARY HYPOTHYROIDISM

REACTIONS (1)
  - Chest pain [Unknown]
